FAERS Safety Report 5430980-7 (Version None)
Quarter: 2007Q3

REPORT INFORMATION
  Report Type: 
  Country: None (occurrence: None)
  Receive Date: 20070830
  Receipt Date: 20070828
  Transmission Date: 20080115
  Serious: Yes (Hospitalization)
  Sender: FDA-Public Use
  Company Number: A0677041A

PATIENT
  Sex: Male

DRUGS (1)
  1. COREG CR [Suspect]
     Indication: DRUG USE FOR UNKNOWN INDICATION
     Route: 048

REACTIONS (13)
  - ABASIA [None]
  - AMNESIA [None]
  - ANOREXIA [None]
  - DIZZINESS [None]
  - FAECAL INCONTINENCE [None]
  - FALL [None]
  - GENERAL PHYSICAL HEALTH DETERIORATION [None]
  - HEPATIC FUNCTION ABNORMAL [None]
  - ILL-DEFINED DISORDER [None]
  - INCOHERENT [None]
  - INJURY [None]
  - LIVING IN RESIDENTIAL INSTITUTION [None]
  - WEIGHT DECREASED [None]
